FAERS Safety Report 24326939 (Version 1)
Quarter: 2024Q3

REPORT INFORMATION
  Report Type: Spontaneous
  Country: FR (occurrence: FR)
  Receive Date: 20240917
  Receipt Date: 20240917
  Transmission Date: 20241017
  Serious: Yes (Hospitalization, Other)
  Sender: CELLTRION
  Company Number: None

PATIENT

DRUGS (2)
  1. RITUXIMAB [Suspect]
     Active Substance: RITUXIMAB
     Indication: Rheumatoid arthritis
     Dosage: EVERY 6 MONTHS
     Dates: start: 2012, end: 20221031
  2. NUCALA [Suspect]
     Active Substance: MEPOLIZUMAB
     Indication: Nasal polyps
     Dosage: 100 MILLIGRAM, MONTHLY
     Dates: start: 20221031, end: 20221122

REACTIONS (2)
  - Renal infarct [Recovered/Resolved]
  - Splenic infarction [Recovered/Resolved]

NARRATIVE: CASE EVENT DATE: 20221201
